FAERS Safety Report 6102722-3 (Version None)
Quarter: 2009Q1

REPORT INFORMATION
  Report Type: 
  Country: None (occurrence: None)
  Receive Date: 20090227
  Receipt Date: 20090219
  Transmission Date: 20090719
  Serious: Yes (Hospitalization)
  Sender: FDA-Public Use
  Company Number: 6049144

PATIENT
  Age: 87 Year
  Sex: Male

DRUGS (9)
  1. BISOPROLOL FUMARATE [Suspect]
     Indication: DRUG USE FOR UNKNOWN INDICATION
     Dosage: 1 DOSAGE FORMS (1 DOSAGE FORME, 1 IN 1 D) ORAL
     Route: 048
  2. TRIATEC (1.25 MG, TABLET) (RAMIPRIL) [Suspect]
     Indication: DRUG USE FOR UNKNOWN INDICATION
     Dosage: 1 DOSAGE FORMS (1 DOSAGE FORMS, 1 IN 1 D) ORAL
     Route: 048
  3. DISCOTRINE (10 MG, TRANSDERMAL PATCH) (GLYCERYL TRINITRATE) [Suspect]
     Indication: DRUG USE FOR UNKNOWN INDICATION
     Dosage: 1 DOSAGE FORMS (1 DOSAGE FORMS, 1 IN 1 24 HR) TRANSDERMAL
     Route: 062
  4. OMIX LP (0.4 MG, CAPSULE) (TAMSULOSIN HYDROCHLORIDE) [Suspect]
     Indication: DRUG USE FOR UNKNOWN INDICATION
     Dosage: 1 DOSAGE FORMS (1 DOSAGE FORMS, 1 IN 1 D) ORAL
     Route: 048
  5. PREVISCAN (FLUINDIONE) [Concomitant]
  6. ALLOPURINOL [Concomitant]
  7. TOBREX [Concomitant]
  8. BICARBONATE (SODIUM BICARBONATE) [Concomitant]
  9. PRAVASTATIN [Concomitant]

REACTIONS (10)
  - ATRIOVENTRICULAR BLOCK [None]
  - BRADYCARDIA [None]
  - CARDIAC DISORDER [None]
  - HYPERKALAEMIA [None]
  - HYPOALBUMINAEMIA [None]
  - LOSS OF CONSCIOUSNESS [None]
  - MALAISE [None]
  - NECROSIS [None]
  - RENAL FAILURE ACUTE [None]
  - TROPONIN INCREASED [None]
